FAERS Safety Report 12793848 (Version 1)
Quarter: 2016Q3

REPORT INFORMATION
  Report Type: Spontaneous
  Country: US (occurrence: US)
  Receive Date: 20160929
  Receipt Date: 20160929
  Transmission Date: 20161109
  Serious: No
  Sender: FDA-Public Use
  Company Number: US-JAZZ-2016-US-011898

PATIENT
  Sex: Female

DRUGS (10)
  1. XYREM [Suspect]
     Active Substance: SODIUM OXYBATE
     Indication: CATAPLEXY
     Dosage: 4.5 G, BID
     Route: 048
     Dates: start: 201312
  2. GIANVI [Concomitant]
     Active Substance: DROSPIRENONE\ETHINYL ESTRADIOL
  3. VICODIN [Concomitant]
     Active Substance: ACETAMINOPHEN\HYDROCODONE BITARTRATE
  4. XYREM [Suspect]
     Active Substance: SODIUM OXYBATE
     Indication: NARCOLEPSY
     Dosage: 2.25 G, BID
     Route: 048
     Dates: start: 201312, end: 201312
  5. MERCAPTOPURINE. [Concomitant]
     Active Substance: MERCAPTOPURINE
  6. APRISO ER [Concomitant]
  7. METFORMIN HYDROCHLORIDE. [Concomitant]
     Active Substance: METFORMIN HYDROCHLORIDE
  8. PROZAC [Concomitant]
     Active Substance: FLUOXETINE HYDROCHLORIDE
  9. KEPPRA XR [Concomitant]
     Active Substance: LEVETIRACETAM
  10. LAMICTAL XR [Concomitant]
     Active Substance: LAMOTRIGINE

REACTIONS (2)
  - Tooth extraction [Unknown]
  - Procedural pain [Unknown]
